FAERS Safety Report 20652550 (Version 4)
Quarter: 2022Q2

REPORT INFORMATION
  Report Type: Spontaneous
  Country: JP (occurrence: JP)
  Receive Date: 20220330
  Receipt Date: 20220616
  Transmission Date: 20220721
  Serious: Yes (Hospitalization, Other)
  Sender: FDA-Public Use
  Company Number: JP-MYLANLABS-2022M1023750

PATIENT
  Age: 69 Year
  Sex: Female

DRUGS (2)
  1. EPIRUBICIN HYDROCHLORIDE [Suspect]
     Active Substance: EPIRUBICIN HYDROCHLORIDE
     Indication: Breast cancer
     Dosage: 136 MILLIGRAM, QD
     Route: 041
     Dates: start: 20220228, end: 20220228
  2. CYCLOPHOSPHAMIDE [Suspect]
     Active Substance: CYCLOPHOSPHAMIDE
     Indication: Breast cancer
     Dosage: 907 MILLIGRAM, QD
     Route: 041
     Dates: start: 20220228, end: 20220228

REACTIONS (5)
  - Renal failure [Recovering/Resolving]
  - Glomerulonephritis rapidly progressive [Not Recovered/Not Resolved]
  - Dehydration [Recovering/Resolving]
  - Antineutrophil cytoplasmic antibody increased [Not Recovered/Not Resolved]
  - Microscopic polyangiitis [Unknown]

NARRATIVE: CASE EVENT DATE: 20220316
